FAERS Safety Report 11751474 (Version 4)
Quarter: 2017Q4

REPORT INFORMATION
  Report Type: Report from Study
  Country: US (occurrence: US)
  Receive Date: 20151118
  Receipt Date: 20171107
  Transmission Date: 20180320
  Serious: Yes (Other)
  Sender: FDA-Public Use
  Company Number: US-MALLINCKRODT-T201404090

PATIENT
  Age: 52 Year
  Sex: Male

DRUGS (5)
  1. REPOSITORY CORTICOTROPIN INJECTION [Suspect]
     Active Substance: CORTICOTROPIN
     Indication: PROTEINURIA
     Dosage: 80 U, BIWEEKLY
     Route: 065
     Dates: start: 20141109, end: 20150318
  2. REPOSITORY CORTICOTROPIN INJECTION [Suspect]
     Active Substance: CORTICOTROPIN
     Indication: NEPHROTIC SYNDROME
     Dosage: 80 U, BIWEEKLY
     Route: 065
     Dates: start: 20140708, end: 201410
  3. REPOSITORY CORTICOTROPIN INJECTION [Suspect]
     Active Substance: CORTICOTROPIN
     Dosage: 20 U ONE TIME EVERY 2 WEEKS
     Route: 058
  4. REPOSITORY CORTICOTROPIN INJECTION [Suspect]
     Active Substance: CORTICOTROPIN
     Dosage: 20 UNITS/.25 ML, ONCE EVERY 2 WEEKS (SATURDAY)
     Route: 058
     Dates: start: 20151123
  5. REPOSITORY CORTICOTROPIN INJECTION [Suspect]
     Active Substance: CORTICOTROPIN
     Dosage: 20 UNITS/TWICE PER WEEK
     Route: 058
     Dates: start: 20151029

REACTIONS (5)
  - Insomnia [Not Recovered/Not Resolved]
  - Protein urine present [Unknown]
  - Increased appetite [Not Recovered/Not Resolved]
  - Renal impairment [Recovering/Resolving]
  - Influenza [Unknown]

NARRATIVE: CASE EVENT DATE: 2014
